FAERS Safety Report 5202289-8 (Version None)
Quarter: 2007Q1

REPORT INFORMATION
  Report Type: 
  Country: None (occurrence: None)
  Receive Date: 20070109
  Receipt Date: 20070105
  Transmission Date: 20070707
  Serious: Yes (Life-Threatening)
  Sender: FDA-Public Use
  Company Number: DE-GLAXOSMITHKLINE-D0051944A

PATIENT
  Age: 59 Year
  Sex: Female
  Weight: 72 kg

DRUGS (2)
  1. HYCAMTIN [Suspect]
     Route: 065
  2. NEUPOGEN [Concomitant]
     Route: 065

REACTIONS (4)
  - BRONCHOPULMONARY ASPERGILLOSIS [None]
  - LEUKOPENIA [None]
  - PANCYTOPENIA [None]
  - THROMBOCYTOPENIA [None]
